FAERS Safety Report 7816100-X (Version None)
Quarter: 2011Q4

REPORT INFORMATION
  Report Type: 
  Country: None (occurrence: None)
  Receive Date: 20111015
  Receipt Date: 20111005
  Transmission Date: 20120403
  Serious: Yes (Hospitalization)
  Sender: FDA-Public Use
  Company Number: US-ASTRAZENECA-2011SE34329

PATIENT
  Age: 65 Year
  Sex: Female
  Weight: 104.8 kg

DRUGS (13)
  1. TALWIN NX [Concomitant]
     Dosage: 50-0.5 MG
     Route: 048
  2. LOOP DIURETIC [Concomitant]
     Dosage: ONCE A DAY
  3. NEXIUM [Suspect]
     Route: 048
  4. FUROSEMIDE [Concomitant]
     Route: 048
  5. PRAVASTATION SODIUM [Concomitant]
     Route: 048
  6. LIBRIUM [Concomitant]
     Route: 048
  7. ESTRACE [Concomitant]
     Route: 048
  8. ISOSORBIDE MONONITRATE [Concomitant]
     Route: 048
  9. ESTRADIOL [Concomitant]
  10. ASPIRIN [Concomitant]
     Route: 048
  11. TOPROL-XL [Suspect]
     Route: 048
  12. LISINOPRIL [Suspect]
     Route: 048
  13. LOOP DIURETIC [Concomitant]
     Dosage: TWICE A DAY

REACTIONS (9)
  - ANAEMIA [None]
  - RENAL FAILURE CHRONIC [None]
  - MACULAR DEGENERATION [None]
  - CATARACT [None]
  - OBESITY [None]
  - OEDEMA PERIPHERAL [None]
  - HYPERTENSION [None]
  - DYSLIPIDAEMIA [None]
  - ARTHRITIS [None]
